FAERS Safety Report 4748104-8 (Version None)
Quarter: 2005Q3

REPORT INFORMATION
  Report Type: 
  Country: None (occurrence: None)
  Receive Date: 20050818
  Receipt Date: 20050428
  Transmission Date: 20060218
  Serious: Yes (Hospitalization, Disabling)
  Sender: FDA-Public Use
  Company Number: US-MERCK-0505USA00237

PATIENT
  Age: 82 Year
  Sex: Female
  Weight: 66 kg

DRUGS (6)
  1. VIOXX [Suspect]
     Indication: ARTHRITIS
     Route: 048
     Dates: start: 20000101
  2. VIOXX [Suspect]
     Route: 048
     Dates: start: 20020101, end: 20020501
  3. VIOXX [Suspect]
     Indication: PAIN
     Route: 048
     Dates: start: 20000101
  4. VIOXX [Suspect]
     Route: 048
     Dates: start: 20020101, end: 20020501
  5. CELEBREX [Concomitant]
     Indication: PAIN
     Route: 065
     Dates: start: 20000101
  6. TYLENOL [Concomitant]
     Route: 065

REACTIONS (8)
  - BLOOD POTASSIUM INCREASED [None]
  - BRADYCARDIA [None]
  - CEREBROVASCULAR ACCIDENT [None]
  - DIVERTICULITIS [None]
  - FALL [None]
  - HYPERHIDROSIS [None]
  - HYPOTENSION [None]
  - MYOCARDIAL INFARCTION [None]
